FAERS Safety Report 5117194-5 (Version None)
Quarter: 2006Q3

REPORT INFORMATION
  Report Type: 
  Country: None (occurrence: None)
  Receive Date: 20060926
  Receipt Date: 20060915
  Transmission Date: 20061208
  Serious: Yes (Other)
  Sender: FDA-Public Use
  Company Number: 2006111517

PATIENT
  Sex: Female

DRUGS (4)
  1. PROVERA [Suspect]
     Indication: HORMONE REPLACEMENT THERAPY
     Dosage: ORAL
     Route: 048
     Dates: start: 19800101, end: 20020901
  2. MEDROXYPROGESTERONE ACETATE [Suspect]
     Indication: HORMONE REPLACEMENT THERAPY
     Dosage: ORAL
     Route: 048
     Dates: start: 19800101, end: 20020901
  3. PREMARIN [Suspect]
     Indication: HORMONE REPLACEMENT THERAPY
     Dates: start: 19800101, end: 20020901
  4. CYCRIN [Suspect]
     Indication: HORMONE REPLACEMENT THERAPY
     Dates: start: 19800101, end: 20020901

REACTIONS (1)
  - BREAST CANCER FEMALE [None]
